FAERS Safety Report 4458416-3 (Version None)
Quarter: 2004Q3

REPORT INFORMATION
  Report Type: 
  Country: None (occurrence: None)
  Receive Date: 20040924
  Receipt Date: 20040830
  Transmission Date: 20050211
  Serious: Yes (Other)
  Sender: FDA-Public Use
  Company Number: JP-MERCK-0409USA00284

PATIENT
  Age: 93 Year
  Sex: Male

DRUGS (8)
  1. [THERAPY UNSPECIFIED] [Concomitant]
     Route: 065
  2. MODACIN [Concomitant]
     Route: 042
     Dates: start: 20040710, end: 20040712
  3. PRIMAXIN [Suspect]
     Indication: PNEUMONIA ASPIRATION
     Route: 042
     Dates: start: 20040713, end: 20040715
  4. CLINDAMYCIN PHOSPHATE [Concomitant]
     Route: 042
     Dates: start: 20040710, end: 20040723
  5. MINOMYCIN [Concomitant]
     Route: 042
     Dates: start: 20040723, end: 20040804
  6. DIPRIVAN [Concomitant]
     Indication: SEDATIVE THERAPY
     Route: 042
     Dates: start: 20040713, end: 20040101
  7. ELASPOL [Concomitant]
     Route: 065
  8. VANCOMYCIN HYDROCHLORIDE [Concomitant]
     Route: 042
     Dates: start: 20040716, end: 20040730

REACTIONS (2)
  - DEPRESSED LEVEL OF CONSCIOUSNESS [None]
  - DYSKINESIA [None]
